FAERS Safety Report 25355755 (Version 1)
Quarter: 2025Q2

REPORT INFORMATION
  Report Type: Spontaneous
  Country: US (occurrence: US)
  Receive Date: 20250525
  Receipt Date: 20250525
  Transmission Date: 20250717
  Serious: No
  Sender: GLAXOSMITHKLINE
  Company Number: US-GSK-US2025AMR056747

PATIENT

DRUGS (3)
  1. NUCALA [Suspect]
     Active Substance: MEPOLIZUMAB
     Indication: Ear disorder
  2. NUCALA [Suspect]
     Active Substance: MEPOLIZUMAB
     Indication: Ill-defined disorder
  3. NUCALA [Suspect]
     Active Substance: MEPOLIZUMAB
     Indication: Blood disorder

REACTIONS (1)
  - Off label use [Unknown]
